FAERS Safety Report 4616522-4 (Version None)
Quarter: 2005Q1

REPORT INFORMATION
  Report Type: 
  Country: None (occurrence: None)
  Receive Date: 20050318
  Receipt Date: 20050302
  Transmission Date: 20050727
  Serious: Yes (Death, Hospitalization)
  Sender: FDA-Public Use
  Company Number: L04-USA-07403-04

PATIENT
  Age: 40 Year
  Sex: Male

DRUGS (9)
  1. CELEXA [Suspect]
  2. ACETAMINOPHEN [Suspect]
  3. CLONAZEPAM [Suspect]
  4. BUSPIRONE HCL [Suspect]
  5. FEXOFENADINE HCL [Suspect]
  6. GABAPENTIN [Concomitant]
  7. DICYCLOMINE/PHENOBARBITAL [Suspect]
  8. OLANZAPINE [Suspect]
  9. TOPIRAMATE [Suspect]

REACTIONS (13)
  - AGGRESSION [None]
  - ANION GAP INCREASED [None]
  - BLOOD BICARBONATE DECREASED [None]
  - BLOOD GLUCOSE DECREASED [None]
  - BLOOD PH DECREASED [None]
  - COMA [None]
  - COMPLETED SUICIDE [None]
  - INTENTIONAL MISUSE [None]
  - MUSCLE CONTRACTURE [None]
  - PCO2 DECREASED [None]
  - PO2 INCREASED [None]
  - TRANSAMINASES INCREASED [None]
  - WHITE BLOOD CELL COUNT DECREASED [None]
